FAERS Safety Report 5485570-7 (Version None)
Quarter: 2007Q4

REPORT INFORMATION
  Report Type: 
  Country: None (occurrence: None)
  Receive Date: 20071015
  Receipt Date: 20071011
  Transmission Date: 20080405
  Serious: Yes (Hospitalization)
  Sender: FDA-Public Use
  Company Number: CH-WYE-H00622207

PATIENT
  Age: 54 Year
  Sex: Female

DRUGS (9)
  1. INDERAL [Suspect]
     Route: 048
     Dates: start: 20070611, end: 20070614
  2. INDERAL [Suspect]
     Route: 048
     Dates: start: 20070615, end: 20070627
  3. ZYPREXA [Concomitant]
     Route: 048
     Dates: start: 20070510, end: 20070515
  4. ZYPREXA [Concomitant]
     Route: 048
     Dates: start: 20070516, end: 20070522
  5. ZYPREXA [Concomitant]
     Route: 048
     Dates: start: 20070523, end: 20070609
  6. ZYPREXA [Concomitant]
     Route: 048
     Dates: start: 20070610, end: 20070626
  7. ZYPREXA [Concomitant]
     Dosage: DOSE AND FREQUENCY NOT SPECIFIED
     Route: 048
     Dates: start: 20070101
  8. TEMESTA [Concomitant]
     Dosage: 1-2 MG DAILY
     Route: 065
     Dates: start: 20070510
  9. SERDOLECT [Suspect]
     Dosage: 4 TO 8 MG DAILY
     Route: 048
     Dates: start: 20070614, end: 20070627

REACTIONS (2)
  - DRY MOUTH [None]
  - SPEECH DISORDER [None]
